FAERS Safety Report 8155729 (Version 2)
Quarter: 2012Q4

REPORT INFORMATION
  Report Type: 
  Country: MX (occurrence: MX)
  Receive Date: 20110926
  Receipt Date: 20120910
  Transmission Date: 20130627
  Serious: Yes (Death)
  Sender: FDA-Public Use
  Company Number: PHHY2011MX83992

PATIENT
  Age: 96 Year
  Sex: Female

DRUGS (3)
  1. EXELON PATCH [Suspect]
     Dosage: 4.6 mg/5 cm2, 1 patch per day
     Route: 062
     Dates: start: 201006
  2. RISPERDAL [Concomitant]
     Indication: ANXIETY
     Dosage: 1 drp, daily
     Dates: start: 200403, end: 201106
  3. RIVOTRIL [Concomitant]
     Indication: SLEEP DISORDER
     Dosage: 0.5 DF, daily

REACTIONS (1)
  - Myocardial infarction [Fatal]
